FAERS Safety Report 11706920 (Version 1)
Quarter: 2015Q4

REPORT INFORMATION
  Report Type: Spontaneous
  Country: US (occurrence: US)
  Receive Date: 20151104
  Receipt Date: 20151104
  Transmission Date: 20160304
  Serious: No
  Sender: FDA-Public Use
  Company Number: US-ELI_LILLY_AND_COMPANY-US201101007566

PATIENT
  Age: 59 Year
  Sex: Female

DRUGS (1)
  1. FORTEO [Suspect]
     Active Substance: TERIPARATIDE
     Indication: OSTEOPOROSIS
     Dosage: 20 UG, DAILY (1/D)
     Dates: start: 201101

REACTIONS (9)
  - Back pain [Unknown]
  - Bone pain [Unknown]
  - Intentional product misuse [Unknown]
  - Nausea [Unknown]
  - Abdominal pain upper [Unknown]
  - Thyroid disorder [Unknown]
  - Muscle disorder [Unknown]
  - Adverse event [Unknown]
  - Gait disturbance [Unknown]

NARRATIVE: CASE EVENT DATE: 20110121
